FAERS Safety Report 4762393-5 (Version None)
Quarter: 2005Q3

REPORT INFORMATION
  Report Type: 
  Country: None (occurrence: None)
  Receive Date: 20050901
  Receipt Date: 20050520
  Transmission Date: 20060218
  Serious: No
  Sender: FDA-Public Use
  Company Number: 200511023BWH

PATIENT
  Age: 42 Year
  Sex: Male

DRUGS (6)
  1. LEVITRA [Suspect]
     Indication: ERECTILE DYSFUNCTION
     Dosage: 10 MG, ONCE, ORAL
     Route: 048
     Dates: start: 20050511, end: 20050512
  2. NORVASC [Concomitant]
  3. CLONIDINE [Concomitant]
  4. BENADRYL [Concomitant]
  5. ZANTAC [Concomitant]
  6. MORPHINE [Concomitant]

REACTIONS (1)
  - ERECTILE DYSFUNCTION [None]
